FAERS Safety Report 12525048 (Version 1)
Quarter: 2016Q3

REPORT INFORMATION
  Report Type: Spontaneous
  Country: CH (occurrence: CH)
  Receive Date: 20160704
  Receipt Date: 20160704
  Transmission Date: 20161109
  Serious: Yes (Life-Threatening, Hospitalization, Other)
  Sender: FDA-Public Use
  Company Number: CH-PFIZER INC-2016311021

PATIENT
  Age: 35 Year
  Sex: Female

DRUGS (7)
  1. FLUOROURACIL. [Suspect]
     Active Substance: FLUOROURACIL
     Indication: ADENOCARCINOMA OF APPENDIX
     Dosage: UNK, CYCLIC
     Dates: start: 20151221, end: 20160311
  2. ELOXATIN [Suspect]
     Active Substance: OXALIPLATIN
     Indication: ADENOCARCINOMA OF APPENDIX
     Dosage: UNK, CYCLIC
     Dates: start: 20151221, end: 20160311
  3. DOXORUBICIN [Suspect]
     Active Substance: DOXORUBICIN
     Dosage: UNK
     Dates: start: 20160412
  4. MITOMYCIN. [Suspect]
     Active Substance: MITOMYCIN
     Dosage: UNK
     Dates: start: 20160412
  5. CAMPTO [Suspect]
     Active Substance: IRINOTECAN
     Indication: ADENOCARCINOMA OF APPENDIX
     Dosage: UNK, CYCLIC
     Dates: start: 20151221, end: 20160311
  6. ACIDUM FOLICUM [Suspect]
     Active Substance: FOLIC ACID
     Indication: ADENOCARCINOMA OF APPENDIX
     Dosage: UNK, CYCLIC
     Dates: start: 20151221, end: 20160311
  7. BEVACIZUMAB [Suspect]
     Active Substance: BEVACIZUMAB
     Indication: ADENOCARCINOMA OF APPENDIX
     Dosage: UNK, CYCLIC
     Dates: start: 20151221, end: 20160311

REACTIONS (1)
  - Acute respiratory distress syndrome [Recovered/Resolved]

NARRATIVE: CASE EVENT DATE: 201605
